FAERS Safety Report 6477217-8 (Version None)
Quarter: 2009Q4

REPORT INFORMATION
  Report Type: 
  Country: None (occurrence: None)
  Receive Date: 20091204
  Receipt Date: 20091204
  Transmission Date: 20100525
  Serious: No
  Sender: FDA-Public Use
  Company Number: None

PATIENT
  Age: 46 Year
  Sex: Female
  Weight: 47.6277 kg

DRUGS (4)
  1. RECLAST [Suspect]
     Indication: MULTIPLE FRACTURES
     Dosage: ONCE A YEAR ONCE A YEAR IV
     Route: 042
     Dates: start: 20080720, end: 20080720
  2. RECLAST [Suspect]
     Indication: OSTEOPENIA
     Dosage: ONCE A YEAR ONCE A YEAR IV
     Route: 042
     Dates: start: 20080720, end: 20080720
  3. RECLAST [Suspect]
     Indication: MULTIPLE FRACTURES
     Dosage: ONCE A YEAR ONCE A YEAR IV
     Route: 042
     Dates: start: 20090912, end: 20090912
  4. RECLAST [Suspect]
     Indication: OSTEOPENIA
     Dosage: ONCE A YEAR ONCE A YEAR IV
     Route: 042
     Dates: start: 20090912, end: 20090912

REACTIONS (11)
  - ARTHRALGIA [None]
  - BALANCE DISORDER [None]
  - BONE PAIN [None]
  - DECREASED APPETITE [None]
  - HEADACHE [None]
  - MUSCLE SPASMS [None]
  - MUSCLE TWITCHING [None]
  - MYALGIA [None]
  - PAIN IN EXTREMITY [None]
  - VISUAL ACUITY REDUCED [None]
  - WEIGHT DECREASED [None]
